FAERS Safety Report 25079370 (Version 1)
Quarter: 2025Q1

REPORT INFORMATION
  Report Type: Spontaneous
  Country: CN (occurrence: CN)
  Receive Date: 20250314
  Receipt Date: 20250314
  Transmission Date: 20250408
  Serious: Yes (Other)
  Sender: BAXTER
  Company Number: None

PATIENT
  Age: 71 Year
  Sex: Female
  Weight: 70 kg

DRUGS (7)
  1. MANNITOL [Suspect]
     Active Substance: MANNITOL
     Indication: Brain contusion
     Route: 041
  2. MANNITOL [Suspect]
     Active Substance: MANNITOL
     Indication: Diuretic therapy
  3. MANNITOL [Suspect]
     Active Substance: MANNITOL
     Indication: Reduction of increased intracranial pressure
  4. OXYGEN [Suspect]
     Active Substance: OXYGEN
     Indication: Post-traumatic headache
     Route: 065
     Dates: start: 20250219
  5. OXYGEN [Suspect]
     Active Substance: OXYGEN
     Indication: Altered state of consciousness
  6. OXYGEN [Suspect]
     Active Substance: OXYGEN
     Indication: Confusional state
  7. CEFUROXIME [Suspect]
     Active Substance: CEFUROXIME
     Indication: Infection prophylaxis
     Route: 065

REACTIONS (1)
  - Hypokalaemia [Recovering/Resolving]

NARRATIVE: CASE EVENT DATE: 20250221
